FAERS Safety Report 5376478-6 (Version None)
Quarter: 2007Q3

REPORT INFORMATION
  Report Type: 
  Country: None (occurrence: None)
  Receive Date: 20070702
  Receipt Date: 20070622
  Transmission Date: 20080115
  Serious: Yes (Hospitalization)
  Sender: FDA-Public Use
  Company Number: DE-ABBOTT-07P-062-0372396-00

PATIENT
  Age: 24 Year
  Sex: Male

DRUGS (8)
  1. ERGENYL TABLETS [Suspect]
     Indication: PERSONALITY DISORDER
     Route: 048
     Dates: start: 20060903, end: 20060907
  2. ERGENYL TABLETS [Suspect]
     Route: 048
     Dates: start: 20060828, end: 20060829
  3. ERGENYL TABLETS [Suspect]
     Route: 048
     Dates: start: 20060830, end: 20060831
  4. ERGENYL TABLETS [Suspect]
     Route: 048
     Dates: start: 20060901, end: 20060902
  5. ERGENYL TABLETS [Suspect]
     Route: 048
     Dates: start: 20060908, end: 20060908
  6. RISPERIDONE [Concomitant]
     Indication: DRUG USE FOR UNKNOWN INDICATION
     Route: 048
     Dates: start: 20040401
  7. CHLORPROTHIXENE HYDROCHLORIDE [Concomitant]
     Indication: DRUG USE FOR UNKNOWN INDICATION
     Route: 048
     Dates: start: 20040401, end: 20060824
  8. CHLORPROTHIXENE HYDROCHLORIDE [Concomitant]
     Route: 048
     Dates: start: 20060825

REACTIONS (2)
  - BLOOD AMYLASE INCREASED [None]
  - LIPASE INCREASED [None]
